FAERS Safety Report 20016164 (Version 1)
Quarter: 2021Q4

REPORT INFORMATION
  Report Type: Spontaneous
  Country: US (occurrence: None)
  Receive Date: 20211102
  Receipt Date: 20211102
  Transmission Date: 20220303
  Serious: No
  Sender: FDA-Public Use
  Company Number: None

PATIENT
  Age: 50 Year
  Sex: Female

DRUGS (1)
  1. REMICADE [Suspect]
     Active Substance: INFLIXIMAB
     Indication: Crohn^s disease
     Dates: start: 202001, end: 202010

REACTIONS (4)
  - Hypertension [None]
  - Nausea [None]
  - Lip swelling [None]
  - Adverse drug reaction [None]

NARRATIVE: CASE EVENT DATE: 20200101
